FAERS Safety Report 7871712-2 (Version None)
Quarter: 2011Q4

REPORT INFORMATION
  Report Type: 
  Country: None (occurrence: None)
  Receive Date: 20111029
  Receipt Date: 20110307
  Transmission Date: 20120403
  Serious: No
  Sender: FDA-Public Use
  Company Number: US-AMGEN-USASP2011012650

PATIENT
  Sex: Female

DRUGS (2)
  1. CELEBREX [Concomitant]
     Dosage: UNK
  2. ENBREL [Suspect]
     Indication: RHEUMATOID ARTHRITIS
     Dosage: 25 MG, 2 TIMES/WK
     Dates: start: 19980301

REACTIONS (6)
  - GAIT DISTURBANCE [None]
  - WEIGHT DECREASED [None]
  - FUNGAL INFECTION [None]
  - DYSSTASIA [None]
  - SINUS TACHYCARDIA [None]
  - THERAPEUTIC RESPONSE DECREASED [None]
